FAERS Safety Report 8189677-5 (Version None)
Quarter: 2012Q1

REPORT INFORMATION
  Report Type: 
  Country: None (occurrence: None)
  Receive Date: 20120307
  Receipt Date: 20120227
  Transmission Date: 20120608
  Serious: Yes (Other)
  Sender: FDA-Public Use
  Company Number: CA-COVIDIEN/TYCO HEALTHCARE/MALLINCKRODT-T201200759

PATIENT
  Age: 32 Year
  Sex: Male

DRUGS (1)
  1. OPTIRAY 160 [Suspect]
     Indication: PRODUCT USED FOR UNKNOWN INDICATION
     Dosage: 80 ML, UNK
     Route: 042

REACTIONS (5)
  - NASAL CONGESTION [None]
  - OCULAR HYPERAEMIA [None]
  - EYELID OEDEMA [None]
  - COUGH [None]
  - WHEEZING [None]
